FAERS Safety Report 8514849-7 (Version None)
Quarter: 2012Q3

REPORT INFORMATION
  Report Type: 
  Country: None (occurrence: None)
  Receive Date: 20120717
  Receipt Date: 20120710
  Transmission Date: 20120928
  Serious: Yes (Other)
  Sender: FDA-Public Use
  Company Number: JP-PFIZER INC-2012165459

PATIENT
  Age: 69 Year
  Sex: Female
  Weight: 40.2 kg

DRUGS (11)
  1. SUTENT [Suspect]
     Indication: RENAL CELL CARCINOMA
     Dosage: 50 MG, 1X/DAY
     Route: 048
     Dates: start: 20120426, end: 20120502
  2. FAMOTIDINE [Suspect]
     Route: 048
  3. DEPAS [Concomitant]
     Route: 048
  4. DEPAKENE [Concomitant]
  5. UREA [Concomitant]
  6. REBAMIPIDE [Suspect]
     Route: 048
  7. MAGMITT [Concomitant]
  8. BETAMETHASONE [Concomitant]
  9. CATALIN K [Concomitant]
     Route: 047
  10. SENNA-MINT WAF [Concomitant]
     Route: 048
  11. LOBU [Concomitant]
     Route: 048

REACTIONS (5)
  - PLATELET COUNT DECREASED [None]
  - NAUSEA [None]
  - HYPONATRAEMIA [None]
  - DISORIENTATION [None]
  - DEPRESSED LEVEL OF CONSCIOUSNESS [None]
